FAERS Safety Report 8766192 (Version 6)
Quarter: 2014Q2

REPORT INFORMATION
  Report Type: Spontaneous
  Country: US (occurrence: US)
  Receive Date: 20120904
  Receipt Date: 20140409
  Transmission Date: 20141212
  Serious: Yes (Hospitalization, Disabling, Other)
  Sender: FDA-Public Use
  Company Number: US-009507513-1205USA00301

PATIENT
  Sex: Female

DRUGS (12)
  1. FOSAMAX [Suspect]
     Indication: OSTEOPOROSIS
     Dosage: UNK
     Route: 048
     Dates: start: 20040824
  2. FOSAMAX [Suspect]
     Dosage: 10 MG, QD
     Route: 048
  3. FOSAMAX [Suspect]
     Dosage: 70 MG, QW
     Route: 048
  4. FOSAMAX [Suspect]
     Indication: OSTEOPOROSIS
     Dosage: 70 MG, QW
     Route: 048
     Dates: start: 20090428
  5. CORTICOSTEROIDS (UNSPECIFIED) [Concomitant]
     Dosage: UNK
     Dates: start: 1974, end: 2013
  6. CENTRUM ULTRA WOMENS [Concomitant]
  7. CYANOCOBALAMIN [Concomitant]
  8. CALCIUM ASCORBATE [Concomitant]
  9. CHOLECALCIFEROL [Concomitant]
  10. POTASSIUM (UNSPECIFIED) [Concomitant]
  11. CRANBERRY [Concomitant]
  12. VITAMIN E [Concomitant]

REACTIONS (47)
  - Femur fracture [Not Recovered/Not Resolved]
  - Open reduction of fracture [Not Recovered/Not Resolved]
  - Bone density decreased [Unknown]
  - Osteoporosis [Unknown]
  - Multiple fractures [Unknown]
  - Femur fracture [Unknown]
  - Tachycardia [Unknown]
  - Hypoglycaemia [Unknown]
  - Fall [Unknown]
  - Upper limb fracture [Unknown]
  - Musculoskeletal pain [Unknown]
  - Foot fracture [Unknown]
  - Jaw disorder [Unknown]
  - Impaired healing [Unknown]
  - Fracture delayed union [Unknown]
  - Vasculitis [Unknown]
  - Injury [Unknown]
  - Raynaud^s phenomenon [Unknown]
  - Dental caries [Unknown]
  - Gingivitis [Unknown]
  - Gingival bleeding [Unknown]
  - Abscess [Unknown]
  - Oral disorder [Unknown]
  - Fistula discharge [Unknown]
  - Osteopetrosis [Unknown]
  - Reflux laryngitis [Unknown]
  - Hypertension [Unknown]
  - Vitamin D deficiency [Unknown]
  - Urinary tract infection [Unknown]
  - Pyelonephritis [Unknown]
  - Diabetes mellitus [Unknown]
  - Tinnitus [Unknown]
  - Migraine [Unknown]
  - Neuropathy peripheral [Unknown]
  - Appendicectomy [Unknown]
  - Hysterectomy [Unknown]
  - Laparotomy [Unknown]
  - Anxiety [Unknown]
  - Depression [Unknown]
  - Limb asymmetry [Unknown]
  - Multiple sclerosis relapse [Unknown]
  - Fracture malunion [Unknown]
  - Nephropathy [Unknown]
  - Renal stone removal [Unknown]
  - Tooth extraction [Unknown]
  - Gastritis [Unknown]
  - Gastrooesophageal reflux disease [Unknown]
